FAERS Safety Report 16581522 (Version 1)
Quarter: 2019Q3

REPORT INFORMATION
  Report Type: Spontaneous
  Country: US (occurrence: US)
  Receive Date: 20190716
  Receipt Date: 20190716
  Transmission Date: 20191004
  Serious: No
  Sender: FDA-Public Use
  Company Number: US-CHILTERN-US-2019-000599

PATIENT
  Age: 63 Year
  Sex: Male

DRUGS (3)
  1. RHOPRESSA [Suspect]
     Active Substance: NETARSUDIL MESYLATE
     Indication: OPEN ANGLE GLAUCOMA
     Dosage: 2 GTT, (1 IN EACH EYE NIGHTLY)
     Route: 047
     Dates: start: 20190531, end: 20190531
  2. PRAVASTATIN. [Concomitant]
     Active Substance: PRAVASTATIN
     Indication: BLOOD CHOLESTEROL INCREASED
     Dosage: 40 MG, QD, 3 YEARS
     Route: 048
  3. DORZOLAMIDE W/TIMOLOL [Concomitant]
     Active Substance: DORZOLAMIDE HYDROCHLORIDE\TIMOLOL MALEATE
     Indication: GLAUCOMA
     Dosage: 1 GTT IN EACH EYE, BID, 1 YEAR
     Route: 047

REACTIONS (2)
  - Conjunctival hyperaemia [Not Recovered/Not Resolved]
  - Dry eye [Not Recovered/Not Resolved]

NARRATIVE: CASE EVENT DATE: 20190601
